FAERS Safety Report 4842593-6 (Version None)
Quarter: 2005Q4

REPORT INFORMATION
  Report Type: 
  Country: None (occurrence: None)
  Receive Date: 20051201
  Receipt Date: 20051122
  Transmission Date: 20060501
  Serious: Yes (Disabling, Other)
  Sender: FDA-Public Use
  Company Number: US-GLAXOSMITHKLINE-A0583742A

PATIENT
  Age: 42 Year
  Sex: Male

DRUGS (2)
  1. LAMICTAL [Suspect]
     Indication: BIPOLAR II DISORDER
     Dosage: 150MG UNKNOWN
     Route: 048
     Dates: start: 20050816, end: 20051031
  2. SYMBYAX [Concomitant]
     Dates: start: 20051012

REACTIONS (2)
  - GASTROINTESTINAL INFLAMMATION [None]
  - GASTROINTESTINAL PAIN [None]
